FAERS Safety Report 13020678 (Version 1)
Quarter: 2016Q4

REPORT INFORMATION
  Report Type: Report from Study
  Country: US (occurrence: US)
  Receive Date: 20161212
  Receipt Date: 20161212
  Transmission Date: 20170207
  Serious: Yes (Hospitalization)
  Sender: FDA-Public Use
  Company Number: US-GILEAD-2016-0247902

PATIENT
  Age: 56 Year
  Sex: Female

DRUGS (1)
  1. EFAVIRENZ/EMTRICITABINE/TENOFOVIR DISOPROXIL FUMARATE [Suspect]
     Active Substance: EFAVIRENZ\EMTRICITABINE\TENOFOVIR DISOPROXIL FUMARATE
     Indication: PRODUCT USED FOR UNKNOWN INDICATION
     Route: 065

REACTIONS (7)
  - Fall [Unknown]
  - Rib fracture [Unknown]
  - Haemorrhage [Unknown]
  - Concussion [Unknown]
  - Rectal prolapse [Unknown]
  - Weight decreased [Unknown]
  - Upper limb fracture [Unknown]
